FAERS Safety Report 4691130-8 (Version None)
Quarter: 2005Q2

REPORT INFORMATION
  Report Type: 
  Country: None (occurrence: None)
  Receive Date: 20050610
  Receipt Date: 20050531
  Transmission Date: 20051028
  Serious: Yes (Hospitalization, Other)
  Sender: FDA-Public Use
  Company Number: 2005-05-2086

PATIENT
  Age: 50 Year
  Sex: Female
  Weight: 60 kg

DRUGS (3)
  1. CLARITIN [Suspect]
     Indication: INFLUENZA LIKE ILLNESS
     Dosage: ORAL
     Route: 048
     Dates: end: 20050403
  2. RHINOFEBRAL [Suspect]
     Indication: INFLUENZA LIKE ILLNESS
     Dates: start: 20050101, end: 20050403
  3. ACETYLSALICYLIC ACID SRT [Suspect]
     Indication: INFLUENZA LIKE ILLNESS
     Dates: start: 20050331, end: 20050401

REACTIONS (5)
  - CRYOGLOBULINS PRESENT [None]
  - RASH MACULO-PAPULAR [None]
  - RASH PRURITIC [None]
  - RHEUMATOID FACTOR POSITIVE [None]
  - VASCULITIS [None]
